FAERS Safety Report 4399737-2 (Version None)
Quarter: 2004Q2

REPORT INFORMATION
  Report Type: 
  Country: None (occurrence: None)
  Receive Date: 20040608
  Receipt Date: 20040305
  Transmission Date: 20050107
  Serious: No
  Sender: FDA-Public Use
  Company Number: FROV000173

PATIENT
  Age: 43 Year
  Sex: Female

DRUGS (1)
  1. FROVA [Suspect]
     Indication: HEADACHE
     Dosage: 2.5 MG DAILY; ORAL
     Route: 048
     Dates: start: 20040220

REACTIONS (1)
  - OLIGOMENORRHOEA [None]
